FAERS Safety Report 9486418 (Version 3)
Quarter: 2014Q1

REPORT INFORMATION
  Report Type: Spontaneous
  Country: US (occurrence: US)
  Receive Date: 20130829
  Receipt Date: 20140307
  Transmission Date: 20141002
  Serious: No
  Sender: FDA-Public Use
  Company Number: US-PFIZER INC-2013248711

PATIENT
  Age: 77 Year
  Sex: Female
  Weight: 61.22 kg

DRUGS (8)
  1. LYRICA [Suspect]
     Indication: DIABETIC NEUROPATHY
     Dosage: 75 MG, 1X/DAY
     Route: 048
  2. LYRICA [Suspect]
     Dosage: 150 MG, 2X/DAY
     Route: 048
  3. LYRICA [Suspect]
     Dosage: 75MG IN THE MORNING AND 150MG AT NIGHT
     Route: 048
  4. CELEBREX [Suspect]
     Dosage: 200 MG, 1X/DAY
  5. AMITRIPTYLINE [Suspect]
     Indication: SLEEP DISORDER
     Dosage: 30 MG (THREE 10MG), 1X/DAY
  6. AMITRIPTYLINE [Suspect]
     Dosage: 50 MG, 1X/DAY
  7. AMBIEN [Suspect]
     Indication: SLEEP DISORDER
     Dosage: 5 MG, AS NEEDED
  8. PROZAC [Suspect]
     Dosage: 10 MG, 1X/DAY

REACTIONS (3)
  - Feeling abnormal [Recovering/Resolving]
  - Dizziness [Recovered/Resolved]
  - Dissociation [Recovering/Resolving]
